FAERS Safety Report 7874968-5 (Version None)
Quarter: 2011Q4

REPORT INFORMATION
  Report Type: 
  Country: None (occurrence: None)
  Receive Date: 20111031
  Receipt Date: 20111024
  Transmission Date: 20120403
  Serious: Yes (Other)
  Sender: FDA-Public Use
  Company Number: FR-JNJFOC-20111012859

PATIENT

DRUGS (23)
  1. CYCLOPHOSPHAMIDE [Suspect]
     Route: 065
  2. ELDISINE [Suspect]
     Indication: LYMPHOMA
     Route: 065
  3. METHOTREXATE [Suspect]
     Indication: LYMPHOMA
     Route: 037
  4. DOXORUBICIN HCL [Suspect]
     Indication: LYMPHOMA
     Route: 042
  5. ELDISINE [Suspect]
     Route: 065
  6. DOXORUBICIN HCL [Suspect]
     Route: 042
  7. BLEOMYCIN SULFATE [Suspect]
     Route: 042
  8. PREDNISONE [Suspect]
     Indication: LYMPHOMA
     Route: 048
  9. NEUPOGEN [Concomitant]
     Route: 065
  10. DOXORUBICIN HCL [Suspect]
     Route: 042
  11. CYCLOPHOSPHAMIDE [Suspect]
     Indication: LYMPHOMA
     Route: 065
  12. MESNA [Suspect]
     Route: 042
  13. DOXORUBICIN HCL [Suspect]
     Route: 042
  14. CYCLOPHOSPHAMIDE [Suspect]
     Route: 065
  15. MESNA [Suspect]
     Route: 042
  16. MESNA [Suspect]
     Indication: LYMPHOMA
     Route: 042
  17. MESNA [Suspect]
     Route: 042
  18. ELDISINE [Suspect]
     Route: 065
  19. ELDISINE [Suspect]
     Route: 065
  20. CYCLOPHOSPHAMIDE [Suspect]
     Route: 065
  21. BLEOMYCIN SULFATE [Suspect]
     Indication: LYMPHOMA
     Route: 042
  22. BLEOMYCIN SULFATE [Suspect]
     Route: 042
  23. BLEOMYCIN SULFATE [Suspect]
     Route: 042

REACTIONS (1)
  - HEPATOTOXICITY [None]
